FAERS Safety Report 4713868-6 (Version None)
Quarter: 2005Q3

REPORT INFORMATION
  Report Type: 
  Country: None (occurrence: None)
  Receive Date: 20050713
  Receipt Date: 20050629
  Transmission Date: 20060218
  Serious: Yes (Hospitalization)
  Sender: FDA-Public Use
  Company Number: USA0506101636

PATIENT
  Age: 44 Year
  Sex: Male

DRUGS (1)
  1. CYMBALTA [Suspect]
     Indication: SCHIZOPHRENIA, PARANOID TYPE
     Dosage: 120 MG

REACTIONS (4)
  - CONDITION AGGRAVATED [None]
  - GASTROOESOPHAGEAL REFLUX DISEASE [None]
  - ORAL INTAKE REDUCED [None]
  - PEPTIC ULCER [None]
